FAERS Safety Report 14206981 (Version 1)
Quarter: 2017Q4

REPORT INFORMATION
  Report Type: Spontaneous
  Country: US (occurrence: US)
  Receive Date: 20171121
  Receipt Date: 20171121
  Transmission Date: 20180321
  Serious: Yes (Life-Threatening, Hospitalization, Disabling, Other)
  Sender: FDA-Public Use
  Company Number: US-THE MEDICINES COMPANY-US-MDCO-17-00361

PATIENT
  Age: 58 Year
  Sex: Male
  Weight: 87.5 kg

DRUGS (6)
  1. BRILINTA [Concomitant]
     Active Substance: TICAGRELOR
     Indication: ACUTE MYOCARDIAL INFARCTION
     Route: 048
     Dates: start: 20170621, end: 20170621
  2. ANGIOMAX [Suspect]
     Active Substance: BIVALIRUDIN
     Indication: PERCUTANEOUS CORONARY INTERVENTION
     Route: 040
     Dates: start: 20170621, end: 20170621
  3. HEPARIN [Concomitant]
     Active Substance: HEPARIN SODIUM
     Indication: ACUTE MYOCARDIAL INFARCTION
     Dosage: NOT REPORTED
     Route: 041
     Dates: start: 20170621, end: 20170622
  4. ASPIRIN. [Concomitant]
     Active Substance: ASPIRIN
     Indication: ACUTE MYOCARDIAL INFARCTION
     Route: 048
     Dates: start: 20170621
  5. TIROFIBAN [Concomitant]
     Active Substance: TIROFIBAN
     Indication: ACUTE MYOCARDIAL INFARCTION
     Dosage: NOT REPORTED
     Route: 042
     Dates: start: 20170621, end: 20170622
  6. ANGIOMAX [Suspect]
     Active Substance: BIVALIRUDIN
     Dosage: 30 ML/HR
     Route: 041
     Dates: start: 20170621, end: 20170621

REACTIONS (1)
  - Vascular stent thrombosis [Recovered/Resolved]

NARRATIVE: CASE EVENT DATE: 201706
